FAERS Safety Report 12441336 (Version 1)
Quarter: 2016Q2

REPORT INFORMATION
  Report Type: Spontaneous
  Country: US (occurrence: None)
  Receive Date: 20160606
  Receipt Date: 20160606
  Transmission Date: 20160815
  Serious: No
  Sender: FDA-Public Use
  Company Number: None

PATIENT
  Age: 54 Year
  Sex: Female

DRUGS (7)
  1. HYDROCO/APAP [Concomitant]
     Active Substance: ACETAMINOPHEN\HYDROCODONE
  2. LETROZOLE. [Concomitant]
     Active Substance: LETROZOLE
  3. IBRANCE [Suspect]
     Active Substance: PALBOCICLIB
     Indication: BREAST CANCER
     Dosage: 125 MG QD1-21 THEN 7 OFF PO
     Route: 048
     Dates: start: 201604
  4. LUPRON [Concomitant]
     Active Substance: LEUPROLIDE ACETATE
  5. XGEVA [Concomitant]
     Active Substance: DENOSUMAB
  6. CALCIUM [Concomitant]
     Active Substance: CALCIUM
  7. CYCLOBENZAPR [Concomitant]

REACTIONS (3)
  - Fatigue [None]
  - Drug dose omission [None]
  - Memory impairment [None]

NARRATIVE: CASE EVENT DATE: 201605
